FAERS Safety Report 5080952-X (Version None)
Quarter: 2006Q3

REPORT INFORMATION
  Report Type: 
  Country: None (occurrence: None)
  Receive Date: 20060810
  Receipt Date: 20060712
  Transmission Date: 20061208
  Serious: Yes (Hospitalization, Other)
  Sender: FDA-Public Use
  Company Number: MAG-2006-0000475

PATIENT
  Age: 53 Year
  Sex: Female

DRUGS (18)
  1. MORPHINE SULFATE [Suspect]
     Indication: CANCER PAIN
     Dosage: SEE IMAGE
     Route: 048
     Dates: start: 20060612, end: 20060615
  2. MORPHINE SULFATE [Suspect]
     Indication: CANCER PAIN
     Dosage: SEE IMAGE
     Route: 048
     Dates: start: 20060612, end: 20060615
  3. MORPHINE SULFATE [Suspect]
     Indication: CANCER PAIN
     Dosage: SEE IMAGE
     Route: 048
     Dates: start: 20060706, end: 20060707
  4. MORPHINE SULFATE [Suspect]
     Indication: CANCER PAIN
     Dosage: SEE IMAGE
     Route: 048
     Dates: start: 20060706, end: 20060707
  5. MORPHINE SULFATE [Suspect]
     Indication: CANCER PAIN
     Dosage: SEE IMAGE
     Route: 048
     Dates: start: 20060707, end: 20060717
  6. MORPHINE SULFATE [Suspect]
     Indication: CANCER PAIN
     Dosage: SEE IMAGE
     Route: 048
     Dates: start: 20060615
  7. MORPHINE SULFATE [Suspect]
     Indication: CANCER PAIN
     Dosage: SEE IMAGE
     Route: 048
     Dates: start: 20060615
  8. MORPHINE SULFATE [Suspect]
     Indication: CANCER PAIN
     Dosage: SEE IMAGE
     Route: 048
     Dates: start: 20060717
  9. MORPHINE SULFATE [Suspect]
     Indication: CANCER PAIN
     Dosage: SEE IMAGE
     Route: 048
     Dates: start: 20060717
  10. OXYCODONE HCL [Suspect]
     Indication: ANALGESIC EFFECT
     Dosage: 200 MG; 200 MG AM; 210 MG, NOCTE
     Dates: start: 20060602, end: 20060606
  11. OXYCODONE HCL [Suspect]
     Indication: ANALGESIC EFFECT
     Dosage: 200 MG; 200 MG AM; 210 MG, NOCTE
     Dates: start: 20060606, end: 20060611
  12. OXYCODONE HCL [Suspect]
     Indication: ANALGESIC EFFECT
     Dosage: 200 MG; 200 MG AM; 210 MG, NOCTE
     Dates: start: 20060606, end: 20060611
  13. MORPHINE [Concomitant]
  14. CARBAMAZEPINE [Concomitant]
  15. DEXAMETHASONE TAB [Concomitant]
  16. ESTAZOLAM (HALOPERIDOL) [Concomitant]
  17. INTERFERON (INTERFERON) [Concomitant]
  18. INDOMETHACIN [Concomitant]

REACTIONS (11)
  - COMMUNICATION DISORDER [None]
  - DELIRIUM [None]
  - DISORIENTATION [None]
  - INSOMNIA [None]
  - MALAISE [None]
  - PAIN [None]
  - PAIN IN EXTREMITY [None]
  - PERSONALITY CHANGE [None]
  - SOMNOLENCE [None]
  - THERAPY NON-RESPONDER [None]
  - URINARY RETENTION [None]
